FAERS Safety Report 11113391 (Version 1)
Quarter: 2015Q2

REPORT INFORMATION
  Report Type: Spontaneous
  Country: JP (occurrence: JP)
  Receive Date: 20150514
  Receipt Date: 20150514
  Transmission Date: 20150821
  Serious: Yes (Hospitalization)
  Sender: FDA-Public Use
  Company Number: JP-ASTRAZENECA-2015SE42189

PATIENT
  Age: 83 Year
  Sex: Female

DRUGS (4)
  1. ROPIVACAINE [Suspect]
     Active Substance: ROPIVACAINE
     Indication: EPIDURAL ANAESTHESIA
     Route: 008
  2. FENTANYL. [Suspect]
     Active Substance: FENTANYL
     Indication: EPIDURAL ANAESTHESIA
     Route: 042
  3. FENTANYL. [Suspect]
     Active Substance: FENTANYL
     Indication: EPIDURAL ANAESTHESIA
     Route: 008
  4. LIDOCAINE. [Suspect]
     Active Substance: LIDOCAINE
     Indication: INDUCTION AND MAINTENANCE OF ANAESTHESIA
     Route: 065

REACTIONS (2)
  - Hypoventilation [Unknown]
  - Respiratory depression [Unknown]
